FAERS Safety Report 11421180 (Version 9)
Quarter: 2018Q3

REPORT INFORMATION
  Report Type: Report from Study
  Country: CA (occurrence: CA)
  Receive Date: 20150826
  Receipt Date: 20180726
  Transmission Date: 20181010
  Serious: Yes (Other)
  Sender: FDA-Public Use
  Company Number: PHHY2013CA033466

PATIENT
  Age: 82 Year
  Sex: Male

DRUGS (5)
  1. SANDOSTATIN LAR DEPOT [Suspect]
     Active Substance: OCTREOTIDE ACETATE
     Dosage: 50 MG, QMO (EVERY 4 WEEKS)
     Route: 030
     Dates: start: 20141110, end: 20151111
  2. SANDOSTATIN LAR DEPOT [Suspect]
     Active Substance: OCTREOTIDE ACETATE
     Dosage: 40 MG, QMO (EVERY 4 WEEKS)
     Route: 030
     Dates: start: 20140429, end: 20141014
  3. SANDOSTATIN LAR DEPOT [Suspect]
     Active Substance: OCTREOTIDE ACETATE
     Dosage: 60 MG, QMO (EVERY 4 WEEKS)
     Route: 030
     Dates: start: 20161012
  4. SANDOSTATIN LAR DEPOT [Suspect]
     Active Substance: OCTREOTIDE ACETATE
     Dosage: 60 MG, QMO (EVERY 4 WEEKS)
     Route: 030
     Dates: start: 20151209
  5. SANDOSTATIN LAR DEPOT [Suspect]
     Active Substance: OCTREOTIDE ACETATE
     Indication: METASTATIC CARCINOID TUMOUR
     Dosage: 30 MG, QMO (EVERY 4 WEEKS)
     Route: 030
     Dates: start: 20130308, end: 20140401

REACTIONS (10)
  - Diarrhoea [Recovered/Resolved]
  - Gout [Unknown]
  - Chills [Unknown]
  - Back pain [Unknown]
  - Pain in extremity [Recovering/Resolving]
  - Blood pressure increased [Unknown]
  - Body temperature decreased [Unknown]
  - Headache [Unknown]
  - Blood pressure systolic increased [Unknown]
  - Fatigue [Unknown]

NARRATIVE: CASE EVENT DATE: 201508
